FAERS Safety Report 12872467 (Version 1)
Quarter: 2016Q4

REPORT INFORMATION
  Report Type: Spontaneous
  Country: GB (occurrence: GB)
  Receive Date: 20161021
  Receipt Date: 20161021
  Transmission Date: 20170207
  Serious: Yes (Other)
  Sender: FDA-Public Use
  Company Number: GB-TEVA-703554ACC

PATIENT
  Sex: Male

DRUGS (2)
  1. SALAMOL [Suspect]
     Active Substance: ALBUTEROL
     Indication: ACUTE POST ASTHMATIC AMYOTROPHY
     Dosage: 1 DOSAGE FORMS DAILY;
     Route: 055
     Dates: start: 20160817, end: 20160825
  2. COCODAMOL [Concomitant]
     Active Substance: ACETAMINOPHEN\CODEINE PHOSPHATE

REACTIONS (2)
  - Headache [Recovering/Resolving]
  - Vision blurred [Unknown]

NARRATIVE: CASE EVENT DATE: 20160817
